FAERS Safety Report 6111021-5 (Version None)
Quarter: 2009Q1

REPORT INFORMATION
  Report Type: 
  Country: None (occurrence: None)
  Receive Date: 20090311
  Receipt Date: 20090306
  Transmission Date: 20090719
  Serious: Yes (Other)
  Sender: FDA-Public Use
  Company Number: PHEH2009US02388

PATIENT
  Sex: Female

DRUGS (2)
  1. ESTRADERM [Suspect]
  2. ANTIBIOTICS [Suspect]

REACTIONS (3)
  - ABDOMINAL DISCOMFORT [None]
  - DIARRHOEA [None]
  - SURGERY [None]
